FAERS Safety Report 7225430-4 (Version None)
Quarter: 2011Q1

REPORT INFORMATION
  Report Type: 
  Country: None (occurrence: None)
  Receive Date: 20110113
  Receipt Date: 20101021
  Transmission Date: 20110831
  Serious: No
  Sender: FDA-Public Use
  Company Number: US-NOVEN-10US001398

PATIENT
  Sex: Female

DRUGS (3)
  1. UNKNOWN [Concomitant]
  2. FENTANYL-100 [Suspect]
     Indication: CROHN'S DISEASE
     Dosage: 75 UG/HR EVERY OTHER DAY
     Route: 062
     Dates: start: 20100913, end: 20100901
  3. FENTANYL-100 [Suspect]
     Indication: RHEUMATOID ARTHRITIS

REACTIONS (3)
  - VOMITING [None]
  - SOMNOLENCE [None]
  - PRODUCT QUALITY ISSUE [None]
